FAERS Safety Report 10765087 (Version 2)
Quarter: 2015Q1

REPORT INFORMATION
  Report Type: Spontaneous
  Country: JP (occurrence: None)
  Receive Date: 20150203
  Receipt Date: 20150212
  Transmission Date: 20150721
  Serious: Yes (Other)
  Sender: FDA-Public Use
  Company Number: 2015SGN00074

PATIENT
  Age: 65 Year
  Sex: Female
  Weight: 56 kg

DRUGS (4)
  1. ADCETRIS [Suspect]
     Active Substance: BRENTUXIMAB VEDOTIN
     Indication: ANAPLASTIC LARGE CELL LYMPHOMA T- AND NULL-CELL TYPES
     Dosage: Q3WEEKS
     Route: 041
     Dates: start: 20141204
  2. BAKTAR (SULFAMETHOXAZOLE, TRIMETHOPRIM) [Concomitant]
  3. ADCETRIS [Suspect]
     Active Substance: BRENTUXIMAB VEDOTIN
     Indication: ANAPLASTIC LARGE-CELL LYMPHOMA
     Dosage: Q3WEEKS
     Route: 041
     Dates: start: 20141204
  4. DENOSINE /00784201/ [Suspect]
     Active Substance: GANCICLOVIR
     Indication: CYTOMEGALOVIRUS ENTEROCOLITIS
     Route: 041
     Dates: start: 20150101, end: 20150108

REACTIONS (13)
  - Hepatic enzyme increased [None]
  - White blood cell count decreased [None]
  - Erythema [None]
  - Staphylococcal infection [None]
  - Pruritus [None]
  - Jaundice [None]
  - Chronic hepatitis [None]
  - Abdominal pain [None]
  - Neutrophil count decreased [None]
  - Cytomegalovirus enterocolitis [None]
  - Rash [None]
  - Diarrhoea [None]
  - Tumour associated fever [None]

NARRATIVE: CASE EVENT DATE: 20141206
